FAERS Safety Report 9647582 (Version 3)
Quarter: 2013Q4

REPORT INFORMATION
  Report Type: Report from Study
  Country: DE (occurrence: DE)
  Receive Date: 20131028
  Receipt Date: 20131203
  Transmission Date: 20140711
  Serious: Yes (Hospitalization)
  Sender: FDA-Public Use
  Company Number: DE-BIOGENIDEC-2013BI101658

PATIENT
  Age: 51 Year
  Sex: Female

DRUGS (5)
  1. TYSABRI [Suspect]
     Indication: RELAPSING-REMITTING MULTIPLE SCLEROSIS
     Route: 042
     Dates: start: 20110819
  2. SEROQUEL [Concomitant]
     Indication: PSYCHOTIC DISORDER
     Dates: start: 20130626
  3. CERAZETTE [Concomitant]
  4. MIRTAZAPIN [Concomitant]
  5. TAMSOLUSIN [Concomitant]

REACTIONS (1)
  - Dementia [Recovered/Resolved]
